FAERS Safety Report 8960939 (Version 1)
Quarter: 2012Q4

REPORT INFORMATION
  Report Type: 
  Country: DE (occurrence: DE)
  Receive Date: 20121212
  Receipt Date: 20121212
  Transmission Date: 20130627
  Serious: Yes (Hospitalization, Other)
  Sender: FDA-Public Use
  Company Number: DE-PFIZER INC-2012308152

PATIENT
  Age: 60 Year

DRUGS (7)
  1. RAMIPRIL [Suspect]
     Indication: HYPERTENSION ARTERIAL
     Dosage: UNK
  2. CEFUROXIME [Suspect]
     Dosage: 1500 mg, UNK
  3. ETOMIDATE [Concomitant]
     Indication: INDUCTION OF ANESTHESIA
     Dosage: 20 mg, UNK
  4. SUFENTANIL [Concomitant]
     Indication: INDUCTION OF ANESTHESIA
     Dosage: 50 mg, UNK
  5. ATRACURIUM [Concomitant]
     Indication: INDUCTION OF ANESTHESIA
     Dosage: 50 mg, UNK
  6. ATROPINE [Concomitant]
     Dosage: 0.5 mg, UNK
  7. NOREPINEPHRINE [Concomitant]
     Dosage: 0.1 mg/h, UNK

REACTIONS (14)
  - Multi-organ failure [Unknown]
  - Lactic acidosis [Recovering/Resolving]
  - Capillary leak syndrome [Unknown]
  - Shock [Unknown]
  - Fibrinolysis increased [Unknown]
  - Coagulopathy [Unknown]
  - Angioedema [Unknown]
  - Hypotension [Unknown]
  - Vascular resistance systemic decreased [Unknown]
  - Anuria [Recovered/Resolved]
  - Polyuria [Recovered/Resolved]
  - Hypovolaemia [Unknown]
  - Erythema [Unknown]
  - Rubber sensitivity [Unknown]
